FAERS Safety Report 22020058 (Version 2)
Quarter: 2023Q1

REPORT INFORMATION
  Report Type: Spontaneous
  Country: None (occurrence: US)
  Receive Date: 20230222
  Receipt Date: 20230228
  Transmission Date: 20230417
  Serious: Yes (Death)
  Sender: FDA-Public Use
  Company Number: US-Mission Pharmacal Company-2138303

PATIENT
  Age: 83 Year
  Sex: Male

DRUGS (8)
  1. THIOLA [Suspect]
     Active Substance: TIOPRONIN
     Indication: Cystinuria
     Route: 048
     Dates: start: 20180928, end: 202301
  2. VITAMINS [Concomitant]
     Active Substance: VITAMINS
  3. NIACINAMIDE [Concomitant]
     Active Substance: NIACINAMIDE
  4. GABAPENTIN [Concomitant]
     Active Substance: GABAPENTIN
  5. FUROSEMIDE [Concomitant]
     Active Substance: FUROSEMIDE
  6. HYDROCORTISONE [Concomitant]
     Active Substance: HYDROCORTISONE
  7. CALCITRIOL [Concomitant]
     Active Substance: CALCITRIOL
  8. ALLOPURINOL [Concomitant]
     Active Substance: ALLOPURINOL

REACTIONS (2)
  - Death [Fatal]
  - Pneumonia [Fatal]
